FAERS Safety Report 10061855 (Version 1)
Quarter: 2014Q2

REPORT INFORMATION
  Report Type: Spontaneous
  Country: FR (occurrence: FR)
  Receive Date: 20140407
  Receipt Date: 20140407
  Transmission Date: 20141212
  Serious: Yes (Other)
  Sender: FDA-Public Use
  Company Number: FR-SA-2014SA038484

PATIENT
  Age: 53 Year
  Sex: Female

DRUGS (6)
  1. CORTANCYL [Suspect]
     Indication: GRANULOMATOSIS WITH POLYANGIITIS
     Route: 048
     Dates: start: 200603, end: 2010
  2. CORTANCYL [Suspect]
     Indication: GRANULOMATOSIS WITH POLYANGIITIS
     Route: 048
     Dates: start: 2010
  3. NASACORT [Suspect]
     Indication: PRODUCT USED FOR UNKNOWN INDICATION
     Route: 045
     Dates: start: 200806
  4. BACTRIM FORTE [Concomitant]
     Dates: start: 200603
  5. IMUREL [Concomitant]
     Dates: start: 200902
  6. SPECIAFOLDINE [Concomitant]
     Dates: start: 200909

REACTIONS (1)
  - Diabetes mellitus [Recovered/Resolved with Sequelae]
